FAERS Safety Report 10070017 (Version 1)
Quarter: 2014Q2

REPORT INFORMATION
  Report Type: Spontaneous
  Country: US (occurrence: None)
  Receive Date: 20140409
  Receipt Date: 20140409
  Transmission Date: 20141212
  Serious: Yes (Death)
  Sender: FDA-Public Use
  Company Number: None

PATIENT
  Age: 69 Year
  Sex: Male
  Weight: 79.5 kg

DRUGS (11)
  1. EXJADE 500MG NOVARTIS [Suspect]
     Indication: MYELODYSPLASTIC SYNDROME
     Route: 048
     Dates: start: 201402, end: 201403
  2. CITALOPRAM [Concomitant]
  3. ZOCOR [Concomitant]
  4. FLUCONAZOLE [Concomitant]
  5. PREDNISONE [Concomitant]
  6. MONTELOKAST [Concomitant]
  7. PENVK [Concomitant]
  8. VALACYCLOVIR [Concomitant]
  9. FLONASE [Concomitant]
  10. PROPAFENONE [Concomitant]
  11. SILDENFAIL [Concomitant]

REACTIONS (1)
  - Disease progression [None]
